FAERS Safety Report 7484863-1 (Version None)
Quarter: 2011Q2

REPORT INFORMATION
  Report Type: 
  Country: None (occurrence: None)
  Receive Date: 20110517
  Receipt Date: 20110510
  Transmission Date: 20111010
  Serious: Yes (Death)
  Sender: FDA-Public Use
  Company Number: A0789856A

PATIENT
  Sex: Male
  Weight: 139.1 kg

DRUGS (20)
  1. TRIAMTERENE [Concomitant]
  2. NAPROXEN [Concomitant]
  3. AVANDIA [Suspect]
     Indication: DIABETES MELLITUS
     Route: 048
     Dates: end: 20070501
  4. GLUCOPHAGE [Concomitant]
  5. PHENERGAN HCL [Concomitant]
  6. DOXAZOSIN MESYLATE [Concomitant]
  7. MUCINEX [Concomitant]
  8. NAPROSYN [Concomitant]
  9. GLIPIZIDE [Concomitant]
  10. CARISOPRODOL [Concomitant]
  11. MAXZIDE [Concomitant]
  12. ZOCOR [Concomitant]
  13. BENAZAPRIL [Concomitant]
  14. ENALAPRIL [Concomitant]
  15. METFORMIN HCL [Concomitant]
  16. INDOMETHACIN [Concomitant]
  17. CARDURA [Concomitant]
  18. LOVENOX [Concomitant]
  19. LOTENSIN [Concomitant]
  20. DILACOR XR [Concomitant]

REACTIONS (4)
  - HYPERTENSIVE HEART DISEASE [None]
  - DEATH [None]
  - CARDIOMEGALY [None]
  - MYOCARDIAL ISCHAEMIA [None]
